FAERS Safety Report 20665851 (Version 1)
Quarter: 2022Q2

REPORT INFORMATION
  Report Type: Spontaneous
  Country: DE (occurrence: DE)
  Receive Date: 20220402
  Receipt Date: 20220402
  Transmission Date: 20220721
  Serious: No
  Sender: FDA-Public Use
  Company Number: DE-LUPIN PHARMACEUTICALS INC.-2022-04687

PATIENT
  Age: 17 Year
  Sex: Female

DRUGS (7)
  1. LAMOTRIGINE [Suspect]
     Active Substance: LAMOTRIGINE
     Indication: Post-traumatic stress disorder
     Dosage: 25 MILLIGRAM, QD (WEEK 1-2) (AT NIGHT)
     Route: 065
     Dates: start: 20200219
  2. LAMOTRIGINE [Suspect]
     Active Substance: LAMOTRIGINE
     Dosage: 50 MILLIGRAM, QD (WEEK 3-4) (AT NIGHT)
     Route: 065
     Dates: start: 2020
  3. LAMOTRIGINE [Suspect]
     Active Substance: LAMOTRIGINE
     Dosage: 50 MILLIGRAM, BID (WEEK 5-6) (AT DAY TIME AND NIGHT TIME)
     Route: 065
     Dates: start: 2020
  4. LAMOTRIGINE [Suspect]
     Active Substance: LAMOTRIGINE
     Dosage: 50 MILLIGRAM, QD (WEEK 7-8) (50MG AT DAY AND 100MG AT NIGHT)
     Route: 065
     Dates: start: 2020
  5. LAMOTRIGINE [Suspect]
     Active Substance: LAMOTRIGINE
     Dosage: 100 MILLIGRAM, QD (WEEK 7-8) (50MG AT DAY AND 100MG AT NIGHT)
     Route: 065
     Dates: start: 2020
  6. LAMOTRIGINE [Suspect]
     Active Substance: LAMOTRIGINE
     Dosage: 100 MILLIGRAM, BID (WEEK 9-10) (AT DAY AND NIGHT)
     Route: 065
     Dates: start: 2020
  7. LAMOTRIGINE [Suspect]
     Active Substance: LAMOTRIGINE
     Dosage: 50 MILLIGRAM, BID (AFTER WEEK 34)( AT DAY AND NIGHT)
     Route: 065
     Dates: start: 2020

REACTIONS (1)
  - Off label use [Unknown]

NARRATIVE: CASE EVENT DATE: 20200101
